FAERS Safety Report 25431477 (Version 1)
Quarter: 2025Q2

REPORT INFORMATION
  Report Type: Spontaneous
  Country: AU (occurrence: AU)
  Receive Date: 20250613
  Receipt Date: 20250613
  Transmission Date: 20250716
  Serious: Yes (Hospitalization)
  Sender: ASCEND THERAPEUTICS US, LLC
  Company Number: AU-Ascend Therapeutics US, LLC-2178419

PATIENT
  Age: 50 Year
  Sex: Female

DRUGS (5)
  1. ESTROGEL [Suspect]
     Active Substance: ESTRADIOL
     Indication: Product used for unknown indication
     Dates: start: 20250319, end: 20250319
  2. ESTROGEL [Suspect]
     Active Substance: ESTRADIOL
     Dates: start: 20250319, end: 20250319
  3. OLANZAPINE [Concomitant]
     Active Substance: OLANZAPINE
  4. AGOMELATINE [Concomitant]
     Active Substance: AGOMELATINE
  5. FLUTIFORM [Concomitant]
     Active Substance: FLUTIFORM

REACTIONS (4)
  - Chest pain [Recovering/Resolving]
  - Malaise [Recovering/Resolving]
  - Flushing [Recovering/Resolving]
  - Extrasystoles [Recovered/Resolved]

NARRATIVE: CASE EVENT DATE: 20250319
